FAERS Safety Report 7228575-8 (Version None)
Quarter: 2011Q1

REPORT INFORMATION
  Report Type: 
  Country: None (occurrence: None)
  Receive Date: 20110117
  Receipt Date: 20110105
  Transmission Date: 20110831
  Serious: No
  Sender: FDA-Public Use
  Company Number: US-BIOGENIDEC-2010BI020080

PATIENT
  Sex: Male

DRUGS (1)
  1. TYSABRI [Suspect]
     Indication: MULTIPLE SCLEROSIS
     Route: 042
     Dates: start: 20070531

REACTIONS (6)
  - HEADACHE [None]
  - MUSCLE TWITCHING [None]
  - ASTHENIA [None]
  - DIPLOPIA [None]
  - HEPATIC ENZYME INCREASED [None]
  - FATIGUE [None]
